FAERS Safety Report 8133481-0 (Version None)
Quarter: 2012Q1

REPORT INFORMATION
  Report Type: 
  Country: None (occurrence: None)
  Receive Date: 20120213
  Receipt Date: 20120206
  Transmission Date: 20120608
  Serious: Yes (Other)
  Sender: FDA-Public Use
  Company Number: US-ALLERGAN-1116970US

PATIENT
  Age: 74 Year
  Sex: Male

DRUGS (1)
  1. OZURDEX [Suspect]
     Indication: CHOROIDITIS
     Dosage: 0.7 MG, SINGLE
     Dates: start: 20111019, end: 20111019

REACTIONS (1)
  - DEVICE DISLOCATION [None]
